FAERS Safety Report 6200473-8 (Version None)
Quarter: 2009Q2

REPORT INFORMATION
  Report Type: 
  Country: None (occurrence: None)
  Receive Date: 20090522
  Receipt Date: 20090512
  Transmission Date: 20091009
  Serious: No
  Sender: FDA-Public Use
  Company Number: JP-PFIZER INC-2009204498

PATIENT
  Age: 51 Year

DRUGS (3)
  1. CELECOX [Suspect]
     Indication: OSTEOARTHRITIS
     Dosage: 100 MG, 1X/DAY
     Route: 048
     Dates: start: 20090415, end: 20090416
  2. CELECOX [Suspect]
     Indication: PAIN
  3. ASCOMP [Concomitant]
     Dosage: UNK
     Route: 048
     Dates: start: 20090415, end: 20090416

REACTIONS (2)
  - EYELID OEDEMA [None]
  - SWELLING FACE [None]
